FAERS Safety Report 13443878 (Version 2)
Quarter: 2017Q2

REPORT INFORMATION
  Report Type: Spontaneous
  Country: JP (occurrence: JP)
  Receive Date: 20170414
  Receipt Date: 20170425
  Transmission Date: 20170830
  Serious: Yes (Life-Threatening)
  Sender: FDA-Public Use
  Company Number: JP-AMGEN-JPNSP2017057008

PATIENT
  Sex: Female

DRUGS (2)
  1. REGPARA [Suspect]
     Active Substance: CINACALCET HYDROCHLORIDE
     Indication: PRODUCT USED FOR UNKNOWN INDICATION
     Dosage: UNK
     Route: 048
  2. ETELCALCETIDE [Concomitant]
     Active Substance: ETELCALCETIDE
     Dosage: UNK
     Route: 065

REACTIONS (1)
  - Hypocalcaemic seizure [Recovered/Resolved]

NARRATIVE: CASE EVENT DATE: 20170330
